FAERS Safety Report 24327681 (Version 3)
Quarter: 2024Q4

REPORT INFORMATION
  Report Type: Spontaneous
  Country: US (occurrence: US)
  Receive Date: 20240917
  Receipt Date: 20241004
  Transmission Date: 20250114
  Serious: No
  Sender: BRISTOL MYERS SQUIBB
  Company Number: US-BRISTOL-MYERS SQUIBB COMPANY-2024-143941

PATIENT
  Age: 73 Year
  Sex: Male

DRUGS (2)
  1. LENALIDOMIDE [Suspect]
     Active Substance: LENALIDOMIDE
     Indication: Plasma cell myeloma
     Route: 048
  2. OXYCODONE [Suspect]
     Active Substance: OXYCODONE
     Indication: Product used for unknown indication

REACTIONS (8)
  - Intervertebral disc compression [Unknown]
  - Fatigue [Unknown]
  - Decreased appetite [Unknown]
  - Constipation [Unknown]
  - Somnolence [Unknown]
  - Back pain [Not Recovered/Not Resolved]
  - Hypervigilance [Not Recovered/Not Resolved]
  - Dysuria [Unknown]
